FAERS Safety Report 7258180-9 (Version None)
Quarter: 2011Q1

REPORT INFORMATION
  Report Type: 
  Country: None (occurrence: None)
  Receive Date: 20110129
  Receipt Date: 20100727
  Transmission Date: 20110831
  Serious: No
  Sender: FDA-Public Use
  Company Number: US-ABBOTT-10P-163-0660157-00

PATIENT
  Age: 69 Year
  Sex: Female

DRUGS (13)
  1. ALPRAZOLAM [Concomitant]
     Indication: ANXIETY
  2. FISH OIL [Concomitant]
     Indication: PRODUCT USED FOR UNKNOWN INDICATION
  3. E CAP MULTIPAL VIT ONE A DAY [Concomitant]
     Indication: MACULAR DEGENERATION
  4. FOLIC ACID [Concomitant]
     Indication: PRODUCT USED FOR UNKNOWN INDICATION
  5. POTASSIUM CHLORIDE ER [Concomitant]
     Indication: MINERAL SUPPLEMENTATION
  6. AVALIDE [Concomitant]
     Indication: BLOOD PRESSURE
     Dosage: 30-12.5 X 1 DAILY
  7. METOPROLOL [Concomitant]
     Indication: BLOOD PRESSURE
  8. HUMIRA [Suspect]
     Indication: CROHN'S DISEASE
     Dosage: 80MG ON 31 JUL 2010, THEN 40MG EOW
     Dates: start: 20100717
  9. SIMVASTATIN [Concomitant]
     Indication: BLOOD CHOLESTEROL INCREASED
     Dosage: AT BEDTIME
  10. CALCIUM WITH VITAMIN D [Concomitant]
     Indication: PRODUCT USED FOR UNKNOWN INDICATION
  11. CLONIDINE [Concomitant]
     Indication: BLOOD PRESSURE
  12. BUMETANIDE [Concomitant]
     Indication: DIURETIC THERAPY
  13. IRON [Concomitant]
     Indication: PRODUCT USED FOR UNKNOWN INDICATION

REACTIONS (1)
  - HEADACHE [None]
